FAERS Safety Report 8083939 (Version 5)
Quarter: 2012Q4

REPORT INFORMATION
  Report Type: 
  Country: US (occurrence: US)
  Receive Date: 20110810
  Receipt Date: 20120920
  Transmission Date: 20130627
  Serious: Yes (Hospitalization, Other)
  Sender: FDA-Public Use
  Company Number: US-ELI_LILLY_AND_COMPANY-US201108000684

PATIENT
  Sex: Female

DRUGS (14)
  1. FORTEO [Suspect]
     Indication: OSTEOPOROSIS
     Dosage: 20 ug, qd
     Route: 065
  2. FORTEO [Suspect]
     Dosage: 20 ug, qd
     Route: 065
     Dates: end: 20120301
  3. FORTEO [Suspect]
     Dosage: 20 ug, UNK
     Dates: start: 20120315
  4. NEXIUM [Concomitant]
  5. SYNTHROID [Concomitant]
  6. LIPITOR [Concomitant]
  7. VICODIN [Concomitant]
  8. AZATHIOPRIN [Concomitant]
  9. PREDNISONE [Concomitant]
  10. INSULIN [Concomitant]
  11. ANALGESICS [Concomitant]
     Indication: PAIN
  12. ANALGESICS [Concomitant]
     Indication: PAIN
  13. DIAVAN [Concomitant]
     Indication: MYOCARDIAL INFARCTION
  14. BABY ASPIRIN [Concomitant]
     Indication: PRODUCT USED FOR UNKNOWN INDICATION

REACTIONS (18)
  - Pancreatitis [Not Recovered/Not Resolved]
  - Precancerous mucosal lesion [Unknown]
  - Haemoglobin decreased [Unknown]
  - Haemorrhage [Unknown]
  - Abdominal pain [Not Recovered/Not Resolved]
  - Pancreatic injury [Unknown]
  - Vomiting [Unknown]
  - Nausea [Unknown]
  - Diabetes mellitus [Unknown]
  - Rheumatoid arthritis [Unknown]
  - Feeling abnormal [Unknown]
  - Gallbladder operation [Unknown]
  - Periarthritis [Unknown]
  - Pain in extremity [Unknown]
  - Abdominal discomfort [Unknown]
  - Weight decreased [Unknown]
  - Arthralgia [Unknown]
  - Dizziness [Unknown]
